FAERS Safety Report 10614633 (Version 1)
Quarter: 2014Q4

REPORT INFORMATION
  Report Type: Spontaneous
  Country: FR (occurrence: FR)
  Receive Date: 20141130
  Receipt Date: 20141130
  Transmission Date: 20150529
  Serious: Yes (Life-Threatening, Hospitalization)
  Sender: FDA-Public Use
  Company Number: FR-BRISTOL-MYERS SQUIBB COMPANY-21640248

PATIENT
  Age: 68 Year
  Sex: Male

DRUGS (5)
  1. AMAREL [Suspect]
     Active Substance: GLIMEPIRIDE
     Dosage: 26-26JAN13
     Route: 048
     Dates: start: 20130126
  2. HYPERIUM [Suspect]
     Active Substance: RILMENIDINE PHOSPHATE
     Dosage: 26-26JAN13
     Route: 048
     Dates: start: 20130126
  3. DILTIAZEM HCL [Suspect]
     Active Substance: DILTIAZEM HYDROCHLORIDE
     Dosage: 300 MG, LP EXTENDED RELEASE CAPAULE,26-26JAN13
     Route: 048
     Dates: start: 20130126
  4. GLUCOPHAGE [Suspect]
     Active Substance: METFORMIN HYDROCHLORIDE
     Dosage: FILM COATED TABS
     Route: 048
     Dates: start: 20130126, end: 20130126
  5. PRAVADUAL [Suspect]
     Active Substance: ASPIRIN\PRAVASTATIN
     Dosage: 26-26JAN13
     Route: 048
     Dates: start: 20130126

REACTIONS (8)
  - Poisoning deliberate [Recovered/Resolved]
  - Toxicity to various agents [Recovered/Resolved]
  - Acute kidney injury [Recovered/Resolved]
  - Hypoglycaemia [Recovered/Resolved]
  - Hypotension [Recovered/Resolved]
  - Sinus bradycardia [Recovered/Resolved]
  - Lactic acidosis [Recovered/Resolved]
  - Vasoplegia syndrome [Recovered/Resolved]

NARRATIVE: CASE EVENT DATE: 20130126
